FAERS Safety Report 24424164 (Version 1)
Quarter: 2024Q4

REPORT INFORMATION
  Report Type: Spontaneous
  Country: GB (occurrence: GB)
  Receive Date: 20241010
  Receipt Date: 20241010
  Transmission Date: 20250115
  Serious: Yes (Other)
  Sender: BAXTER
  Company Number: GB-BAXTER-2024BAX025350

PATIENT

DRUGS (2)
  1. SODIUM CHLORIDE [Suspect]
     Active Substance: SODIUM CHLORIDE
     Dosage: PACLITAXEL 120 MG IN 270 ML SODIUM CHLORIDE 0.9% BP
     Route: 065
  2. PACLITAXEL [Suspect]
     Active Substance: PACLITAXEL
     Dosage: PACLITAXEL 120 MG IN 270 ML SODIUM CHLORIDE 0.9% BP
     Route: 065

REACTIONS (7)
  - Hypoxia [Recovered/Resolved]
  - Adverse reaction [Unknown]
  - Flushing [Recovered/Resolved]
  - Throat tightness [Recovered/Resolved]
  - Dyspnoea [Recovered/Resolved]
  - Chest discomfort [Recovered/Resolved]
  - Chest pain [Recovered/Resolved]

NARRATIVE: CASE EVENT DATE: 20240916
